FAERS Safety Report 16484529 (Version 1)
Quarter: 2019Q2

REPORT INFORMATION
  Report Type: Spontaneous
  Country: US (occurrence: US)
  Receive Date: 20190516
  Receipt Date: 20190516
  Transmission Date: 20190711
  Serious: Yes (Other)
  Sender: FDA-Public Use
  Company Number: None

PATIENT
  Age: 38 Year
  Sex: Male
  Weight: 74.84 kg

DRUGS (1)
  1. BUPROPION/NALTREXONE 8MG/2MG [Suspect]
     Active Substance: BUPROPION HYDROCHLORIDE\NALTREXONE HYDROCHLORIDE
     Dosage: 8MG/2MG BID SL
     Route: 060
     Dates: start: 20190411, end: 20190425

REACTIONS (1)
  - Product substitution [None]

NARRATIVE: CASE EVENT DATE: 20190411
